FAERS Safety Report 20908944 (Version 2)
Quarter: 2022Q2

REPORT INFORMATION
  Report Type: Spontaneous
  Country: TH (occurrence: None)
  Receive Date: 20220603
  Receipt Date: 20220607
  Transmission Date: 20220721
  Serious: Yes (Other)
  Sender: FDA-Public Use
  Company Number: TH-ROCHE-3107673

PATIENT
  Sex: Female

DRUGS (1)
  1. ENTRECTINIB [Suspect]
     Active Substance: ENTRECTINIB
     Indication: Neoplasm
     Route: 048
     Dates: start: 20220301

REACTIONS (8)
  - Herpes zoster [Unknown]
  - Ataxia [Unknown]
  - Anaemia [Unknown]
  - Oedema peripheral [Unknown]
  - Dizziness [Unknown]
  - Dysgeusia [Unknown]
  - Fatigue [Unknown]
  - Weight increased [Unknown]
